FAERS Safety Report 13050087 (Version 8)
Quarter: 2017Q3

REPORT INFORMATION
  Report Type: Report from Study
  Country: BR (occurrence: BR)
  Receive Date: 20161221
  Receipt Date: 20170915
  Transmission Date: 20171127
  Serious: Yes (Life-Threatening, Hospitalization, Other)
  Sender: FDA-Public Use
  Company Number: PHHY2016BR173684

PATIENT
  Age: 64 Year
  Sex: Female
  Weight: 50 kg

DRUGS (3)
  1. NORIPURUM [Concomitant]
     Active Substance: IRON POLYMALTOSE
     Indication: PRODUCT USED FOR UNKNOWN INDICATION
     Dosage: UNK
     Route: 065
  2. SANDOSTATIN LAR DEPOT [Suspect]
     Active Substance: OCTREOTIDE ACETATE
     Indication: NEUROENDOCRINE TUMOUR
     Dosage: 40 MG, QMO (2 AMPOULES OF 20 MG ONCE A MONTH)
     Route: 030
     Dates: start: 200811
  3. INFLUENZA VACCINE [Concomitant]
     Active Substance: INFLUENZA VIRUS VACCINE
     Indication: PRODUCT USED FOR UNKNOWN INDICATION
     Route: 065

REACTIONS (29)
  - Abdominal pain upper [Unknown]
  - Asthenia [Unknown]
  - Herpes virus infection [Recovering/Resolving]
  - Osteoporosis [Recovering/Resolving]
  - Speech disorder [Unknown]
  - Sleep disorder [Unknown]
  - Weight increased [Unknown]
  - Skin discolouration [Unknown]
  - Coma [Unknown]
  - Short-bowel syndrome [Unknown]
  - Insomnia [Not Recovered/Not Resolved]
  - Weight decreased [Unknown]
  - Body height decreased [Unknown]
  - Diarrhoea [Unknown]
  - Neoplasm [Unknown]
  - Back pain [Unknown]
  - Decubitus ulcer [Unknown]
  - Pain [Not Recovered/Not Resolved]
  - Nosocomial infection [Unknown]
  - Gait inability [Unknown]
  - Pyrexia [Recovered/Resolved]
  - Faeces hard [Unknown]
  - Pain in extremity [Unknown]
  - Injury [Unknown]
  - Malaise [Unknown]
  - Upper limb fracture [Recovered/Resolved]
  - Depression [Unknown]
  - Somnolence [Unknown]
  - Spinal cord infection [Unknown]

NARRATIVE: CASE EVENT DATE: 201608
